FAERS Safety Report 15744260 (Version 1)
Quarter: 2018Q4

REPORT INFORMATION
  Report Type: Spontaneous
  Country: DE (occurrence: DE)
  Receive Date: 20181220
  Receipt Date: 20181220
  Transmission Date: 20190205
  Serious: Yes (Other)
  Sender: FDA-Public Use
  Company Number: DE-TORRENT-00012724

PATIENT
  Age: 53 Year
  Sex: Female

DRUGS (5)
  1. LIDOCAINE. [Suspect]
     Active Substance: LIDOCAINE
     Indication: RADICULOPATHY
     Dosage: UNKNOWN
     Route: 061
  2. DULOXETINE HYDROCHLORIDE. [Suspect]
     Active Substance: DULOXETINE HYDROCHLORIDE
     Indication: RADICULOPATHY
     Dosage: UNKNOWN
     Route: 065
  3. TILIDINE [Suspect]
     Active Substance: TILIDINE
     Indication: NEURALGIA
     Dosage: UNKNOWN
     Route: 065
  4. NALOXONE [Suspect]
     Active Substance: NALOXONE
     Indication: RADICULOPATHY
     Dosage: UNKNOWN
     Route: 065
  5. TAPENTADOL [Suspect]
     Active Substance: TAPENTADOL
     Indication: NEURALGIA
     Dosage: UNKNOWN
     Route: 065

REACTIONS (7)
  - Drug ineffective for unapproved indication [Unknown]
  - Medication error [Unknown]
  - Cognitive disorder [Unknown]
  - Therapeutic response decreased [Unknown]
  - Intentional product misuse [Unknown]
  - Product use in unapproved indication [Unknown]
  - Drug effect incomplete [Unknown]
